FAERS Safety Report 9792205 (Version 1)
Quarter: 2013Q4

REPORT INFORMATION
  Report Type: Spontaneous
  Country: US (occurrence: None)
  Receive Date: 20131231
  Receipt Date: 20131231
  Transmission Date: 20140711
  Serious: No
  Sender: FDA-Public Use
  Company Number: None

PATIENT
  Age: 65 Year
  Sex: Male
  Weight: 65.77 kg

DRUGS (1)
  1. ZOLPIDEM [Suspect]
     Indication: SLEEP DISORDER
     Dosage: 1 PILL ?1-2 TIMES A WEEK ?TAKEN BY MOUTH
     Route: 048
     Dates: start: 20110215, end: 20131229

REACTIONS (1)
  - Diplopia [None]
